FAERS Safety Report 5591645-4 (Version None)
Quarter: 2008Q1

REPORT INFORMATION
  Report Type: 
  Country: None (occurrence: None)
  Receive Date: 20080115
  Receipt Date: 20080104
  Transmission Date: 20080703
  Serious: Yes (Hospitalization)
  Sender: FDA-Public Use
  Company Number: GB-ROCHE-539851

PATIENT
  Age: 55 Year
  Sex: Female
  Weight: 130 kg

DRUGS (12)
  1. ORLISTAT [Suspect]
     Indication: OBESITY
     Dosage: THERAPY TEMPORARILY INTERRUPTED
     Route: 048
     Dates: start: 20070611
  2. ORLISTAT [Suspect]
     Route: 048
  3. CANDESARTAN [Concomitant]
     Indication: BLOOD PRESSURE
     Route: 048
  4. MONTELUKAST SODIUM [Concomitant]
     Indication: ASTHMA
     Route: 048
  5. LEVOTHYROXINE SODIUM [Concomitant]
     Indication: HYPOTHYROIDISM
     Route: 048
  6. ASPIRIN [Concomitant]
     Indication: ANGINA PECTORIS
     Route: 048
  7. FELODIPINE [Concomitant]
     Indication: BLOOD PRESSURE
     Route: 048
  8. NICORANDIL [Concomitant]
     Indication: BLOOD PRESSURE
     Route: 048
  9. SIMVASTATIN [Concomitant]
     Route: 048
  10. OMEPRAZOLE [Concomitant]
     Indication: HERNIA
     Route: 048
  11. FEXOFENADINE [Concomitant]
     Route: 048
  12. SPASMONAL [Concomitant]
     Dosage: FREQUENCY: UPTO 3 TIMES PER DAY AS NEEDED; STOPS SPASMS FOR HER HERNIA
     Route: 048

REACTIONS (2)
  - ABDOMINAL HERNIA [None]
  - VOMITING [None]
